FAERS Safety Report 6882635-X (Version None)
Quarter: 2010Q3

REPORT INFORMATION
  Report Type: 
  Country: None (occurrence: None)
  Receive Date: 20100702
  Receipt Date: 20090626
  Transmission Date: 20110219
  Serious: No
  Sender: FDA-Public Use
  Company Number: 2009-00259

PATIENT
  Age: 48 Year
  Sex: Female
  Weight: 57.6068 kg

DRUGS (2)
  1. ZICAM NASAL PRODUCTS [Suspect]
     Dosage: BID, 2-3 DAYS
     Dates: start: 20081001
  2. ZICAM NASAL PRODUCTS [Suspect]
     Dosage: EVERY 4-5 HOURS, 10 DAYS
     Dates: start: 20081001

REACTIONS (2)
  - AGEUSIA [None]
  - ANOSMIA [None]
